FAERS Safety Report 7502175-4 (Version None)
Quarter: 2011Q2

REPORT INFORMATION
  Report Type: 
  Country: None (occurrence: None)
  Receive Date: 20110525
  Receipt Date: 20110506
  Transmission Date: 20111010
  Serious: No
  Sender: FDA-Public Use
  Company Number: US-B.I. PHARMACEUTICALS,INC./RIDGEFIELD-2011-BP-09702BP

PATIENT
  Sex: Male

DRUGS (3)
  1. VERAPAMIL XR [Concomitant]
     Indication: ATRIAL FIBRILLATION
     Dosage: 240 MG
     Route: 048
  2. PRADAXA [Suspect]
     Indication: ATRIAL FIBRILLATION
     Dosage: 300 MG
     Route: 048
     Dates: start: 20110303
  3. QVAR 40 [Concomitant]
     Indication: ASTHMA
     Route: 055

REACTIONS (10)
  - OESOPHAGEAL IRRITATION [None]
  - OESOPHAGEAL DISORDER [None]
  - ABDOMINAL PAIN UPPER [None]
  - NAUSEA [None]
  - GASTROINTESTINAL SOUNDS ABNORMAL [None]
  - PROCTALGIA [None]
  - DYSPHAGIA [None]
  - CHEST PAIN [None]
  - HAEMORRHOIDS [None]
  - HAEMORRHOIDAL HAEMORRHAGE [None]
